FAERS Safety Report 5756139-1 (Version None)
Quarter: 2008Q2

REPORT INFORMATION
  Report Type: 
  Country: None (occurrence: None)
  Receive Date: 20080602
  Receipt Date: 20080528
  Transmission Date: 20081010
  Serious: Yes (Other)
  Sender: FDA-Public Use
  Company Number: US-BAXTER-2008BH005536

PATIENT
  Sex: Male

DRUGS (1)
  1. LACTATED RINGER'S [Suspect]
     Indication: WOUND TREATMENT
     Dosage: DOSE UNIT:UNKNOWN
     Route: 061
     Dates: start: 20070101, end: 20070101

REACTIONS (1)
  - WOUND INFECTION PSEUDOMONAS [None]
